FAERS Safety Report 6033254-9 (Version None)
Quarter: 2009Q1

REPORT INFORMATION
  Report Type: 
  Country: None (occurrence: None)
  Receive Date: 20090109
  Receipt Date: 20090106
  Transmission Date: 20090719
  Serious: Yes (Hospitalization, Other)
  Sender: FDA-Public Use
  Company Number: GB-JNJCH-2009000451

PATIENT
  Sex: Male

DRUGS (1)
  1. NICORETTE [Suspect]
     Indication: DRUG USE FOR UNKNOWN INDICATION
     Dosage: TEXT:UNSPECIFIED
     Route: 062

REACTIONS (6)
  - BLOOD PRESSURE INCREASED [None]
  - EAR HAEMORRHAGE [None]
  - EPISTAXIS [None]
  - HAEMORRHAGE [None]
  - HYPERSENSITIVITY [None]
  - MALAISE [None]
